FAERS Safety Report 8797761 (Version 1)
Quarter: 2012Q4

REPORT INFORMATION
  Report Type: Spontaneous
  Country: US (occurrence: None)
  Receive Date: 20120914
  Receipt Date: 20120914
  Transmission Date: 20130627
  Serious: No
  Sender: FDA-Public Use
  Company Number: None

PATIENT
  Age: 5 Year
  Sex: Male
  Weight: 20.87 kg

DRUGS (2)
  1. ZYRTEC [Suspect]
     Indication: SEASONAL ALLERGY
     Dosage: up to 1 teaspoon per day once daily po
     Route: 048
     Dates: start: 20120115, end: 20120329
  2. ZYRTEC [Suspect]
     Indication: SEASONAL ALLERGY
     Dates: start: 20120509, end: 20120822

REACTIONS (2)
  - Dyskinesia [None]
  - Musculoskeletal stiffness [None]
